FAERS Safety Report 19977858 (Version 1)
Quarter: 2021Q4

REPORT INFORMATION
  Report Type: Spontaneous
  Country: US (occurrence: US)
  Receive Date: 20211020
  Receipt Date: 20211020
  Transmission Date: 20220303
  Serious: No
  Sender: FDA-Public Use
  Company Number: None

PATIENT
  Age: 72 Year
  Sex: Male
  Weight: 80.96 kg

DRUGS (1)
  1. INLYTA [Suspect]
     Active Substance: AXITINIB
     Indication: Prostate cancer
     Route: 048

REACTIONS (6)
  - Nausea [None]
  - Weight decreased [None]
  - Headache [None]
  - Feeling abnormal [None]
  - Defaecation urgency [None]
  - Constipation [None]

NARRATIVE: CASE EVENT DATE: 20211020
